FAERS Safety Report 22623756 (Version 1)
Quarter: 2023Q2

REPORT INFORMATION
  Report Type: Report from Study
  Country: CO (occurrence: CO)
  Receive Date: 20230621
  Receipt Date: 20230621
  Transmission Date: 20230721
  Serious: Yes (Hospitalization, Other)
  Sender: FDA-Public Use
  Company Number: CO-BAYER-2023A052112

PATIENT
  Sex: Male

DRUGS (1)
  1. EYLEA [Suspect]
     Active Substance: AFLIBERCEPT
     Indication: Diabetic retinal oedema
     Dosage: 2 MG, 40 MG/ML (2 MG INTRAVITREALLY MONTHLY FOR 5 MONTHS, THEN EVERY 2 MONTHS), SOL FOR INJ.
     Route: 031
     Dates: start: 20220630

REACTIONS (7)
  - Eye excision [Unknown]
  - Generalised oedema [Unknown]
  - Dysuria [Unknown]
  - Constipation [Unknown]
  - Eye disorder [Not Recovered/Not Resolved]
  - Eye pain [Not Recovered/Not Resolved]
  - Ocular hyperaemia [Not Recovered/Not Resolved]

NARRATIVE: CASE EVENT DATE: 20230413
